FAERS Safety Report 13752208 (Version 1)
Quarter: 2017Q3

REPORT INFORMATION
  Report Type: Spontaneous
  Country: US (occurrence: US)
  Receive Date: 20170713
  Receipt Date: 20170713
  Transmission Date: 20171127
  Serious: No
  Sender: FDA-Public Use
  Company Number: US-JAZZ-2017-US-004976

PATIENT
  Sex: Female

DRUGS (17)
  1. XYREM [Suspect]
     Active Substance: SODIUM OXYBATE
     Dosage: 4.5G, BID
     Route: 048
     Dates: start: 201408
  2. GABAPENTIN. [Concomitant]
     Active Substance: GABAPENTIN
  3. XYREM [Suspect]
     Active Substance: SODIUM OXYBATE
     Indication: CATAPLEXY
     Dosage: DOSE ADJUSTMENT
     Route: 048
     Dates: start: 201403, end: 2014
  4. CYMBALTA [Concomitant]
     Active Substance: DULOXETINE HYDROCHLORIDE
  5. EPIPEN [Concomitant]
     Active Substance: EPINEPHRINE
  6. NORCO [Concomitant]
     Active Substance: ACETAMINOPHEN\HYDROCODONE BITARTRATE
  7. PROVENTIL HFA                      /00139501/ [Concomitant]
  8. TAMSULOSIN HCL [Concomitant]
     Active Substance: TAMSULOSIN
  9. TRAMADOL. [Concomitant]
     Active Substance: TRAMADOL
  10. BACLOFEN. [Concomitant]
     Active Substance: BACLOFEN
  11. DEXILANT [Concomitant]
     Active Substance: DEXLANSOPRAZOLE
  12. XYREM [Suspect]
     Active Substance: SODIUM OXYBATE
     Indication: NARCOLEPSY
     Dosage: 2.25G, BID
     Route: 048
     Dates: start: 201403, end: 201403
  13. BIOTIN [Concomitant]
     Active Substance: BIOTIN
  14. VITAMIN B12 [Concomitant]
     Active Substance: CYANOCOBALAMIN
  15. PREDNISONE. [Concomitant]
     Active Substance: PREDNISONE
  16. CALTRATE                           /00944201/ [Concomitant]
     Active Substance: CALCIUM CARBONATE\CHOLECALCIFEROL
  17. VITAMIN D                          /00107901/ [Concomitant]
     Active Substance: ERGOCALCIFEROL

REACTIONS (3)
  - Hypotension [Unknown]
  - Dizziness [Not Recovered/Not Resolved]
  - Insomnia [Unknown]
